FAERS Safety Report 9495920 (Version 2)
Quarter: 2013Q3

REPORT INFORMATION
  Report Type: Report from Study
  Country: US (occurrence: US)
  Receive Date: 20130903
  Receipt Date: 20130905
  Transmission Date: 20140515
  Serious: Yes (Hospitalization)
  Sender: FDA-Public Use
  Company Number: US-MERCK-1308USA014023

PATIENT
  Age: 57 Year
  Sex: Female
  Weight: 85 kg

DRUGS (6)
  1. VORINOSTAT [Suspect]
     Indication: DIFFUSE LARGE B-CELL LYMPHOMA
     Dosage: 400 MG, QD ON DAYS 1-5 OF 1 21 DAY^S CYCLE
     Route: 048
     Dates: start: 20130813, end: 20130817
  2. CYCLOPHOSPHAMIDE [Suspect]
     Indication: DIFFUSE LARGE B-CELL LYMPHOMA
     Dosage: 750 MG/M2 IV OVER 30-60 MINUTES ON DAY 3 OF A 21 DAY^S CYCLE
     Route: 042
     Dates: start: 20130815, end: 20130815
  3. DOXORUBICIN [Suspect]
     Indication: DIFFUSE LARGE B-CELL LYMPHOMA
     Dosage: 50 MG/M2 IVP ON DAY 3 OF A 21 DAYS^ CYCLE
     Route: 042
     Dates: start: 20130815, end: 20130815
  4. PREDNISONE [Suspect]
     Indication: DIFFUSE LARGE B-CELL LYMPHOMA
     Dosage: 100 MG, QD ON DAYS 3-7 OF A 21 DAYS^ CYCLE
     Route: 048
     Dates: start: 20130815, end: 20130819
  5. RITUXIMAB [Suspect]
     Indication: DIFFUSE LARGE B-CELL LYMPHOMA
     Dosage: 375 MG/M2 IV INFUSION ON DAY 3 OF A 21 DAYS^ CYCLE
     Route: 042
     Dates: start: 20130815, end: 20130815
  6. VINCRISTINE [Suspect]
     Indication: DIFFUSE LARGE B-CELL LYMPHOMA
     Dosage: 1.4 MG/M2 IVP ON DAY 3 OF A 21 DAYS^ CYCLE
     Route: 042
     Dates: start: 20130815, end: 20130815

REACTIONS (1)
  - Febrile neutropenia [Recovered/Resolved]
